FAERS Safety Report 6158726-8 (Version None)
Quarter: 2009Q2

REPORT INFORMATION
  Report Type: 
  Country: None (occurrence: None)
  Receive Date: 20090417
  Receipt Date: 20090410
  Transmission Date: 20091009
  Serious: Yes (Hospitalization)
  Sender: FDA-Public Use
  Company Number: A0779039A

PATIENT
  Age: 56 Year
  Sex: Female
  Weight: 72.7 kg

DRUGS (11)
  1. AVANDIA [Suspect]
     Indication: DIABETES MELLITUS
     Dosage: 8MG PER DAY
     Route: 048
     Dates: start: 20000922, end: 20070201
  2. METFORMIN HCL [Concomitant]
  3. GLUCOTROL [Concomitant]
  4. LIPITOR [Concomitant]
  5. PRAVACHOL [Concomitant]
  6. CELEXA [Concomitant]
  7. EFFEXOR [Concomitant]
  8. DIOVAN [Concomitant]
  9. UNIVASC [Concomitant]
  10. NAPROXEN [Concomitant]
  11. HYDROCODONE BITARTRATE [Concomitant]

REACTIONS (3)
  - CARDIAC FAILURE CONGESTIVE [None]
  - CORONARY ARTERY DISEASE [None]
  - MYOCARDIAL ISCHAEMIA [None]
